FAERS Safety Report 8387997-2 (Version None)
Quarter: 2012Q2

REPORT INFORMATION
  Report Type: 
  Country: None (occurrence: None)
  Receive Date: 20120525
  Receipt Date: 20120520
  Transmission Date: 20120825
  Serious: Yes (Hospitalization)
  Sender: FDA-Public Use
  Company Number: PHHY2012TR043435

PATIENT
  Age: 17 Year
  Sex: Female

DRUGS (1)
  1. SERTRALINE HYDROCHLORIDE [Suspect]
     Indication: HEADACHE
     Dosage: 50 MG, UNK

REACTIONS (5)
  - OROMANDIBULAR DYSTONIA [None]
  - TRISMUS [None]
  - PAIN IN JAW [None]
  - LIP DRY [None]
  - MUSCLE TIGHTNESS [None]
